FAERS Safety Report 25980690 (Version 1)
Quarter: 2025Q4

REPORT INFORMATION
  Report Type: Spontaneous
  Country: CN (occurrence: CN)
  Receive Date: 20251030
  Receipt Date: 20251030
  Transmission Date: 20260118
  Serious: Yes (Other)
  Sender: COHERUS
  Company Number: CN-SHANGHAI JUNSHI BIOSCIENCES CO., LTD.-CN2025016278

PATIENT

DRUGS (7)
  1. TORIPALIMAB [Suspect]
     Active Substance: TORIPALIMAB
     Indication: Small cell lung cancer extensive stage
     Dosage: 240 MG, Q3W, CYCLE 1-2
     Route: 041
  2. TORIPALIMAB [Suspect]
     Active Substance: TORIPALIMAB
     Dosage: 240 MG, Q3W, CYCLE 3
     Route: 041
     Dates: start: 20250710, end: 20250710
  3. ETOPOSIDE [Suspect]
     Active Substance: ETOPOSIDE
     Indication: Small cell lung cancer extensive stage
     Dosage: UNK UNK, Q3WEEKS
     Route: 041
  4. ETOPOSIDE [Suspect]
     Active Substance: ETOPOSIDE
     Dosage: 170 MG, Q3W
     Route: 041
     Dates: start: 20250710, end: 20250712
  5. CISPLATIN [Suspect]
     Active Substance: CISPLATIN
     Indication: Small cell lung cancer extensive stage
     Dosage: UNK, Q3WEEKS
     Route: 041
  6. CISPLATIN [Suspect]
     Active Substance: CISPLATIN
     Dosage: 50 MG, Q3W
     Route: 041
     Dates: start: 20250710, end: 20250710
  7. CISPLATIN [Suspect]
     Active Substance: CISPLATIN
     Dosage: 40 MG, Q3W
     Route: 041
     Dates: start: 20250711, end: 20250712

REACTIONS (1)
  - Myelosuppression [Recovering/Resolving]

NARRATIVE: CASE EVENT DATE: 20250713
